FAERS Safety Report 23348596 (Version 2)
Quarter: 2024Q1

REPORT INFORMATION
  Report Type: Report from Study
  Country: KR (occurrence: KR)
  Receive Date: 20231228
  Receipt Date: 20240108
  Transmission Date: 20240410
  Serious: Yes (Hospitalization)
  Sender: FDA-Public Use
  Company Number: KR-ABBVIE-5562414

PATIENT
  Sex: Female
  Weight: 36 kg

DRUGS (5)
  1. HUMIRA [Suspect]
     Active Substance: ADALIMUMAB
     Indication: Crohn^s disease
     Dosage: FORM STRENGTH: 40 MG?FREQUENCY TEXT: ONCE
     Route: 058
     Dates: start: 20231101, end: 20231101
  2. HUMIRA [Suspect]
     Active Substance: ADALIMUMAB
     Dosage: FORM STRENGTH: 40 MG?FREQUENCY TEXT: ONCE
     Route: 058
     Dates: start: 20231207, end: 20231207
  3. HUMIRA [Suspect]
     Active Substance: ADALIMUMAB
     Dosage: FORM STRENGTH: 40 MG?FREQUENCY TEXT: ONCE
     Route: 058
     Dates: start: 20231102, end: 20231102
  4. HUMIRA [Suspect]
     Active Substance: ADALIMUMAB
     Dosage: FORM STRENGTH 40 MG
     Route: 058
     Dates: start: 20231223
  5. AZATHIOPRINE [Concomitant]
     Active Substance: AZATHIOPRINE
     Indication: Crohn^s disease
     Dosage: FORM STRENGTH: 1 TABLET
     Route: 065
     Dates: start: 20231123, end: 20231123

REACTIONS (5)
  - Ileocaecal resection [Recovered/Resolved]
  - Small intestinal resection [Recovered/Resolved]
  - Abscess intestinal [Unknown]
  - Intestinal perforation [Unknown]
  - Gallbladder abscess [Unknown]

NARRATIVE: CASE EVENT DATE: 20230101
